FAERS Safety Report 7858990-0 (Version None)
Quarter: 2011Q4

REPORT INFORMATION
  Report Type: 
  Country: None (occurrence: None)
  Receive Date: 20111027
  Receipt Date: 20110921
  Transmission Date: 20120403
  Serious: Yes (Death, Hospitalization, Other)
  Sender: FDA-Public Use
  Company Number: GB-PERRIGO-11GB007825

PATIENT
  Age: 24 Year
  Sex: Male

DRUGS (6)
  1. ASPIRIN [Suspect]
     Indication: SUICIDE ATTEMPT
     Dosage: UNK
     Route: 065
  2. KETAMINE HCL [Suspect]
     Indication: SUICIDE ATTEMPT
     Dosage: UNK
     Route: 065
  3. IBUPROFEN [Suspect]
     Indication: SUICIDE ATTEMPT
     Dosage: UNK
     Route: 065
  4. ACETAMINOPHEN [Suspect]
     Indication: SUICIDE ATTEMPT
     Dosage: 50 G, SINGLE
     Route: 065
  5. IRON [Suspect]
     Indication: SUICIDE ATTEMPT
     Dosage: UNK
     Route: 065
  6. CORTICOSTEROIDS FOR SYSTEMIC USE, PLAIN [Concomitant]
     Indication: TRANSPLANT REJECTION
     Route: 065

REACTIONS (4)
  - DRUG INTERACTION [None]
  - MULTIPLE DRUG OVERDOSE [None]
  - ACUTE HEPATIC FAILURE [None]
  - ASPERGILLOSIS [None]
